FAERS Safety Report 5088347-X (Version None)
Quarter: 2006Q3

REPORT INFORMATION
  Report Type: 
  Country: None (occurrence: None)
  Receive Date: 20060821
  Receipt Date: 20060802
  Transmission Date: 20061208
  Serious: Yes (Hospitalization)
  Sender: FDA-Public Use
  Company Number: 2006001546

PATIENT
  Age: 80 Year
  Sex: Male

DRUGS (9)
  1. TARCEVA [Suspect]
     Indication: LUNG NEOPLASM MALIGNANT
     Dosage: SEE IMAGE
     Route: 048
     Dates: start: 20051001
  2. BEVACIZUMAB (INJECTION FOR INFUSION) [Suspect]
     Dosage: INTRAVENOUS DRIP
     Route: 041
     Dates: start: 20051001, end: 20060731
  3. SIMVASTATIN [Concomitant]
  4. LEXAPRO [Concomitant]
  5. WARFARIN [Concomitant]
  6. CLONAZEPAM [Concomitant]
  7. COREG [Concomitant]
  8. ALTACE [Concomitant]
  9. ASPIRIN [Concomitant]

REACTIONS (2)
  - CARDIAC FAILURE CONGESTIVE [None]
  - PURPURA [None]
